FAERS Safety Report 5391675-1 (Version None)
Quarter: 2007Q3

REPORT INFORMATION
  Report Type: 
  Country: None (occurrence: None)
  Receive Date: 20070719
  Receipt Date: 20070716
  Transmission Date: 20080115
  Serious: Yes (Life-Threatening)
  Sender: FDA-Public Use
  Company Number: EE-GENENTECH-244625

PATIENT
  Age: 77 Year
  Sex: Female

DRUGS (11)
  1. ACTIVASE [Suspect]
     Indication: THROMBOSIS
     Dosage: 85 MG, UNK
     Route: 042
     Dates: start: 20070630
  2. FENTANYL [Concomitant]
     Indication: ANALGESIA
     Dosage: 0.5 MG, UNK
     Route: 042
     Dates: start: 20070630, end: 20070702
  3. DORMICUM [Concomitant]
     Indication: SEDATION
     Dosage: 50 MG, UNK
     Route: 042
     Dates: start: 20070630, end: 20070702
  4. DOPAMIN [Concomitant]
     Indication: CARDIAC FAILURE
     Dosage: 200 MG, UNK
     Route: 042
     Dates: start: 20070630, end: 20070701
  5. MONOPRIL [Concomitant]
     Indication: HYPERTENSION
     Dosage: 20 MG, UNK
     Route: 048
  6. METOPROLOL SUCCINATE [Concomitant]
     Indication: HYPERTENSION
     Dosage: 50 MG, UNK
     Route: 048
  7. MANINIL [Concomitant]
     Indication: DIABETES MELLITUS
     Dosage: 3.5 MG, UNK
     Route: 048
  8. TRANDATE [Concomitant]
     Indication: HYPERTENSION
     Dosage: 10 MG, UNK
     Route: 042
     Dates: start: 20070630, end: 20070713
  9. SUXAMETHONIUM CHLORIDE [Concomitant]
     Indication: SEDATION
     Dosage: 100 NG, UNK
     Route: 042
     Dates: start: 20070630, end: 20070630
  10. NEXIUM [Concomitant]
     Indication: REFLUX OESOPHAGITIS
     Dosage: 40 MG, UNK
     Route: 042
     Dates: start: 20070701
  11. PERFALGAN [Concomitant]
     Indication: ANALGESIA
     Dosage: 1 G, UNK
     Route: 042
     Dates: start: 20070701

REACTIONS (3)
  - DERMATITIS BULLOUS [None]
  - DYSPNOEA [None]
  - TONGUE OEDEMA [None]
